FAERS Safety Report 4554019-0 (Version None)
Quarter: 2005Q1

REPORT INFORMATION
  Report Type: 
  Country: None (occurrence: None)
  Receive Date: 20050113
  Receipt Date: 20050113
  Transmission Date: 20050727
  Serious: Yes (Hospitalization, Other)
  Sender: FDA-Public Use
  Company Number: None

PATIENT
  Age: 45 Year
  Sex: Female

DRUGS (2)
  1. CORICIDIN D (CHLORPHENIRAMINE/PHENYLPROPANOLAMINE/AS   TABLETS [Suspect]
     Indication: NASAL CONGESTION
     Dosage: INTERMITTENT ORAL
     Route: 048
     Dates: start: 19980401, end: 19980503
  2. SYNTHROID [Concomitant]

REACTIONS (11)
  - CEREBROVASCULAR ACCIDENT [None]
  - CONFUSIONAL STATE [None]
  - DEPRESSED LEVEL OF CONSCIOUSNESS [None]
  - DISTURBANCE IN ATTENTION [None]
  - EMOTIONAL DISORDER [None]
  - LOSS OF CONSCIOUSNESS [None]
  - NAUSEA [None]
  - SENSORY DISTURBANCE [None]
  - TINNITUS [None]
  - VISUAL DISTURBANCE [None]
  - VOMITING [None]
